FAERS Safety Report 16192305 (Version 3)
Quarter: 2019Q4

REPORT INFORMATION
  Report Type: Report from Study
  Country: US (occurrence: US)
  Receive Date: 20190412
  Receipt Date: 20191202
  Transmission Date: 20200122
  Serious: No
  Sender: FDA-Public Use
  Company Number: US-SA-2018SA272384

PATIENT
  Age: 61 Year
  Sex: Male

DRUGS (2)
  1. ALIROCUMAB [Suspect]
     Active Substance: ALIROCUMAB
     Indication: BLOOD CHOLESTEROL ABNORMAL
     Dosage: 75 MG, QOW
     Dates: start: 201810
  2. ALIROCUMAB [Suspect]
     Active Substance: ALIROCUMAB
     Indication: BLOOD CHOLESTEROL INCREASED
     Dosage: 75 MG, QOW

REACTIONS (6)
  - Device operational issue [Unknown]
  - Clumsiness [Unknown]
  - Muscular weakness [Unknown]
  - Drug dose omission by device [Unknown]
  - Limb operation [Unknown]
  - Product dose omission [Unknown]
